FAERS Safety Report 7209634-2 (Version None)
Quarter: 2011Q1

REPORT INFORMATION
  Report Type: 
  Country: None (occurrence: None)
  Receive Date: 20110104
  Receipt Date: 20101227
  Transmission Date: 20110831
  Serious: Yes (Hospitalization)
  Sender: FDA-Public Use
  Company Number: FR-VALEANT-2011VX000001

PATIENT
  Age: 48 Year
  Sex: Female

DRUGS (3)
  1. ANCOTIL [Suspect]
     Route: 041
     Dates: start: 20100922, end: 20101005
  2. AMBISOME [Suspect]
     Route: 042
     Dates: start: 20100922, end: 20100928
  3. FUNGIZONE [Suspect]
     Route: 042
     Dates: start: 20100928, end: 20101005

REACTIONS (5)
  - METABOLIC ACIDOSIS [None]
  - HYPOKALAEMIA [None]
  - DYSPNOEA [None]
  - BLOOD BICARBONATE DECREASED [None]
  - RENAL TUBULAR ACIDOSIS [None]
